FAERS Safety Report 23826897 (Version 1)
Quarter: 2024Q2

REPORT INFORMATION
  Report Type: Spontaneous
  Country: US (occurrence: None)
  Receive Date: 20240506
  Receipt Date: 20240506
  Transmission Date: 20240716
  Serious: Yes (Hospitalization)
  Sender: FDA-Public Use
  Company Number: None

PATIENT
  Age: 79 Year
  Sex: Male
  Weight: 105 kg

DRUGS (1)
  1. SULFAMETHOXAZOLE\TRIMETHOPRIM [Suspect]
     Active Substance: SULFAMETHOXAZOLE\TRIMETHOPRIM
     Indication: Urinary tract infection
     Dosage: OTHER QUANTITY : 800/160MG;?FREQUENCY : TWICE A WEEK;?
     Route: 048
     Dates: start: 20220715, end: 20220720

REACTIONS (2)
  - Angioedema [None]
  - Dysuria [None]

NARRATIVE: CASE EVENT DATE: 20220719
